FAERS Safety Report 5372769-3 (Version None)
Quarter: 2007Q2

REPORT INFORMATION
  Report Type: 
  Country: None (occurrence: None)
  Receive Date: 20070621
  Receipt Date: 20070313
  Transmission Date: 20071010
  Serious: Yes (Other)
  Sender: FDA-Public Use
  Company Number: US-JNJFOC-20070302990

PATIENT
  Age: 47 Year
  Sex: Male
  Weight: 67.1324 kg

DRUGS (1)
  1. HALDOL DECANOATE (HALOPERIDOL DECANOATE) INJECTION [Suspect]
     Indication: DRUG USE FOR UNKNOWN INDICATION
     Dosage: 1 IN 2 WEEK, INTRAMUSCULAR
     Route: 030
     Dates: start: 20040101

REACTIONS (6)
  - CARDIAC DISORDER [None]
  - CONVULSION [None]
  - EPISTAXIS [None]
  - HYPERTENSION [None]
  - JOINT SWELLING [None]
  - WEIGHT INCREASED [None]
